FAERS Safety Report 7998670-4 (Version None)
Quarter: 2011Q4

REPORT INFORMATION
  Report Type: 
  Country: None (occurrence: None)
  Receive Date: 20111221
  Receipt Date: 20111214
  Transmission Date: 20120403
  Serious: Yes (Hospitalization, Other)
  Sender: FDA-Public Use
  Company Number: US-MERCK-0905USA00339

PATIENT
  Age: 52 Year
  Sex: Female

DRUGS (5)
  1. LIPITOR [Concomitant]
     Indication: BLOOD CHOLESTEROL INCREASED
     Route: 065
     Dates: start: 20000101
  2. INSULIN [Concomitant]
     Indication: TYPE 1 DIABETES MELLITUS
     Route: 065
     Dates: start: 19800101
  3. FOSAMAX [Suspect]
     Indication: OSTEOPOROSIS
     Route: 048
     Dates: start: 20060101, end: 20080101
  4. NORVASC [Concomitant]
     Indication: HYPERTENSION
     Route: 065
     Dates: start: 20000101
  5. LISINOPRIL [Concomitant]
     Indication: HYPERTENSION
     Route: 065
     Dates: start: 20000101

REACTIONS (68)
  - OSTEONECROSIS OF JAW [None]
  - ADVERSE EVENT [None]
  - ANGINA UNSTABLE [None]
  - CARDIOVASCULAR DISORDER [None]
  - RENAL FAILURE CHRONIC [None]
  - TRICUSPID VALVE INCOMPETENCE [None]
  - CYST [None]
  - UMBILICAL HERNIA [None]
  - MITRAL VALVE INCOMPETENCE [None]
  - CEREBROVASCULAR ACCIDENT [None]
  - CARDIAC FAILURE CONGESTIVE [None]
  - HEPATIC CONGESTION [None]
  - PHYSICAL ASSAULT [None]
  - ABDOMINAL HERNIA [None]
  - TRANSIENT ISCHAEMIC ATTACK [None]
  - SYNCOPE [None]
  - RESPIRATORY FAILURE [None]
  - OSTEOARTHRITIS [None]
  - CARDIOMYOPATHY [None]
  - ABDOMINAL PAIN [None]
  - ASTHMA [None]
  - BONE LESION [None]
  - CEREBRAL ISCHAEMIA [None]
  - BRAIN NATRIURETIC PEPTIDE INCREASED [None]
  - GASTROOESOPHAGEAL REFLUX DISEASE [None]
  - VENTRICULAR TACHYCARDIA [None]
  - ARTHROPATHY [None]
  - DEPRESSION [None]
  - DIVERTICULUM [None]
  - DECUBITUS ULCER [None]
  - ANXIETY [None]
  - DILATATION VENTRICULAR [None]
  - PLEURAL EFFUSION [None]
  - MYOCARDIAL INFARCTION [None]
  - THYROID FUNCTION TEST ABNORMAL [None]
  - CORONARY ARTERY DISEASE [None]
  - RIB FRACTURE [None]
  - RENAL DISORDER [None]
  - CONFUSIONAL STATE [None]
  - GOITRE [None]
  - CONTUSION [None]
  - ACUTE CORONARY SYNDROME [None]
  - CARDIAC DISORDER [None]
  - CHRONIC OBSTRUCTIVE PULMONARY DISEASE [None]
  - BLOOD GLUCOSE INCREASED [None]
  - LEFT VENTRICULAR HYPERTROPHY [None]
  - LEFT ATRIAL DILATATION [None]
  - STRESS [None]
  - CONVERSION DISORDER [None]
  - CONVULSION [None]
  - ACUTE RESPIRATORY FAILURE [None]
  - PERIARTHRITIS [None]
  - FALL [None]
  - ARTERIOVENOUS FISTULA OCCLUSION [None]
  - ARTHRALGIA [None]
  - CHEST PAIN [None]
  - GASTROINTESTINAL INFLAMMATION [None]
  - VENTRICULAR EXTRASYSTOLES [None]
  - PNEUMONIA [None]
  - TRACHEOBRONCHITIS [None]
  - OEDEMA PERIPHERAL [None]
  - IRON DEFICIENCY [None]
  - GLAUCOMA [None]
  - ATELECTASIS [None]
  - OBESITY [None]
  - ANAEMIA [None]
  - NEPHROPATHY [None]
  - CHANGE OF BOWEL HABIT [None]
